FAERS Safety Report 8958102 (Version 3)
Quarter: 2018Q3

REPORT INFORMATION
  Report Type: Spontaneous
  Country: DE (occurrence: DE)
  Receive Date: 20121211
  Receipt Date: 20180824
  Transmission Date: 20181010
  Serious: Yes (Death, Hospitalization)
  Sender: FDA-Public Use
  Company Number: PHHY2012DE113653

PATIENT

DRUGS (2)
  1. PREDNISOLONE. [Suspect]
     Active Substance: PREDNISOLONE
     Indication: RHEUMATOID ARTHRITIS
  2. PREDNISOLONE. [Suspect]
     Active Substance: PREDNISOLONE
     Indication: POLYARTHRITIS
     Dosage: HIGH DOSES
     Route: 065

REACTIONS (8)
  - Cardiac failure [Fatal]
  - Osteoporosis [Unknown]
  - Paraplegia [Recovering/Resolving]
  - Epidural lipomatosis [Recovered/Resolved]
  - Paraparesis [Recovering/Resolving]
  - Urinary retention [Unknown]
  - Sensory loss [Recovering/Resolving]
  - Fat tissue increased [Unknown]
